FAERS Safety Report 5007847-1 (Version None)
Quarter: 2006Q2

REPORT INFORMATION
  Report Type: 
  Country: None (occurrence: None)
  Receive Date: 20060522
  Receipt Date: 20060418
  Transmission Date: 20061013
  Serious: Yes (Hospitalization, Other)
  Sender: FDA-Public Use
  Company Number: US-JNJFOC-20041206151

PATIENT
  Sex: Male
  Weight: 62 kg

DRUGS (20)
  1. RISPERDAL [Suspect]
     Dosage: (3 MG TABLET; 1.5 TABLETS DAILY)
     Route: 048
  2. RISPERDAL [Suspect]
     Route: 048
  3. RISPERDAL [Suspect]
     Route: 048
  4. RISPERDAL [Suspect]
     Dosage: (1 MG TABLET; ONE-HALF TABLET TWICE DAILY)
     Route: 048
  5. RISPERDAL [Suspect]
     Route: 048
  6. RISPERDAL [Suspect]
     Route: 048
  7. RISPERDAL [Suspect]
     Indication: SCHIZOPHRENIFORM DISORDER
     Route: 048
  8. LUVOX [Concomitant]
     Route: 048
  9. LUVOX [Concomitant]
     Dosage: (100 MG TABLET; ONE TABLET IN MORNING AND 0.5 TABLET AT BEDTIME)
     Route: 048
  10. PAXIL [Concomitant]
     Route: 048
  11. PAXIL [Concomitant]
     Dosage: (20 MG TABLET; 3 TABLETS EVERY MORNING)
     Route: 048
  12. PAXIL [Concomitant]
     Dosage: (STARTED AT 10 MG IN APPROXIMATELY NOV-97)
     Route: 048
  13. PAXIL [Concomitant]
     Route: 048
  14. PAXIL [Concomitant]
     Indication: OBSESSIVE-COMPULSIVE DISORDER
     Route: 048
  15. PAXIL [Concomitant]
     Indication: ANXIETY
     Route: 048
  16. KLONOPIN [Concomitant]
     Dosage: (1 MG TABLET; 1.5 TABLETS TWICE DAILY)
     Route: 048
  17. KLONOPIN [Concomitant]
     Route: 048
  18. KLONOPIN [Concomitant]
     Route: 048
  19. KLONOPIN [Concomitant]
     Route: 048
  20. KLONOPIN [Concomitant]
     Route: 048

REACTIONS (23)
  - ABDOMINAL PAIN [None]
  - BLOOD CALCIUM DECREASED [None]
  - BLOOD CHLORIDE INCREASED [None]
  - BLOOD PH DECREASED [None]
  - BLOOD PHOSPHORUS DECREASED [None]
  - BLOOD SODIUM DECREASED [None]
  - BLOOD UREA INCREASED [None]
  - CARBON DIOXIDE DECREASED [None]
  - CHILLS [None]
  - DIABETES MELLITUS INSULIN-DEPENDENT [None]
  - DIABETIC KETOACIDOSIS [None]
  - HYPOKINESIA [None]
  - INSULIN C-PEPTIDE DECREASED [None]
  - MUSCLE RIGIDITY [None]
  - MUSCULOSKELETAL STIFFNESS [None]
  - PO2 INCREASED [None]
  - PYREXIA [None]
  - RED BLOOD CELLS URINE POSITIVE [None]
  - SPUTUM CULTURE POSITIVE [None]
  - STAPHYLOCOCCAL INFECTION [None]
  - TACHYPNOEA [None]
  - VOMITING [None]
  - WHITE BLOOD CELL COUNT DECREASED [None]
